FAERS Safety Report 18134668 (Version 1)
Quarter: 2020Q3

REPORT INFORMATION
  Report Type: Spontaneous
  Country: US (occurrence: US)
  Receive Date: 20200810
  Receipt Date: 20200810
  Transmission Date: 20201103
  Serious: No
  Sender: FDA-Public Use
  Company Number: None

PATIENT
  Age: 33 Year
  Sex: Female

DRUGS (1)
  1. GLATIRAMER PFS 40MG/ML [Suspect]
     Active Substance: GLATIRAMER ACETATE
     Route: 058
     Dates: start: 202004

REACTIONS (6)
  - Dysarthria [None]
  - Paraesthesia [None]
  - Dyspnoea [None]
  - Diarrhoea [None]
  - Swelling face [None]
  - Nausea [None]

NARRATIVE: CASE EVENT DATE: 20200805
